FAERS Safety Report 14880306 (Version 1)
Quarter: 2018Q2

REPORT INFORMATION
  Report Type: Spontaneous
  Country: US (occurrence: US)
  Receive Date: 20180425
  Receipt Date: 20180425
  Transmission Date: 20180711
  Serious: Yes (Other)
  Sender: FDA-Public Use
  Company Number: None

PATIENT
  Sex: Male

DRUGS (2)
  1. ONDANSETRON [Concomitant]
     Active Substance: ONDANSETRON
  2. CAPECITABINE. [Suspect]
     Active Substance: CAPECITABINE
     Indication: CARCINOID TUMOUR
     Dosage: ?          OTHER FREQUENCY:BID FOR 14 DAYS;?
     Route: 048
     Dates: start: 20180305

REACTIONS (2)
  - Spinal pain [None]
  - Insomnia [None]
